FAERS Safety Report 10037816 (Version 1)
Quarter: 2014Q1

REPORT INFORMATION
  Report Type: Spontaneous
  Country: US (occurrence: US)
  Receive Date: 20140326
  Receipt Date: 20140326
  Transmission Date: 20141002
  Serious: No
  Sender: FDA-Public Use
  Company Number: US-PFIZER INC-2014086367

PATIENT
  Age: 56 Year
  Sex: Female
  Weight: 68.03 kg

DRUGS (8)
  1. CHANTIX [Suspect]
     Indication: SMOKING CESSATION THERAPY
     Dosage: 0.5 MG, 1X/DAY
     Route: 048
     Dates: start: 201403, end: 201403
  2. CHANTIX [Suspect]
     Dosage: UNK
     Route: 048
     Dates: start: 201403
  3. DOXEPIN [Concomitant]
     Indication: ANXIETY
     Dosage: UNK
  4. DOXEPIN [Concomitant]
     Indication: DEPRESSION
  5. RESTORIL [Concomitant]
     Indication: SLEEP DISORDER
     Dosage: UNK
  6. PAXIL [Concomitant]
     Dosage: UNK
  7. PERCOCET [Concomitant]
     Dosage: UNK
  8. GABAPENTIN [Concomitant]
     Dosage: UNK

REACTIONS (1)
  - Abnormal dreams [Not Recovered/Not Resolved]
